FAERS Safety Report 5484698-5 (Version None)
Quarter: 2007Q4

REPORT INFORMATION
  Report Type: 
  Country: None (occurrence: None)
  Receive Date: 20071012
  Receipt Date: 20071001
  Transmission Date: 20080405
  Serious: Yes (Other)
  Sender: FDA-Public Use
  Company Number: US-PFIZER INC-2007082081

PATIENT

DRUGS (2)
  1. LYRICA [Suspect]
  2. OPIOIDS [Concomitant]

REACTIONS (1)
  - PSYCHOTIC DISORDER [None]
